FAERS Safety Report 7494550-1 (Version None)
Quarter: 2011Q2

REPORT INFORMATION
  Report Type: 
  Country: None (occurrence: None)
  Receive Date: 20110520
  Receipt Date: 20110511
  Transmission Date: 20111010
  Serious: Yes (Other)
  Sender: FDA-Public Use
  Company Number: PHHY2010BR78692

PATIENT
  Sex: Female

DRUGS (1)
  1. EXFORGE HCT [Suspect]
     Dosage: 160/12.5/5 MG

REACTIONS (6)
  - SWELLING FACE [None]
  - BLOOD PRESSURE INCREASED [None]
  - BLOOD PRESSURE DECREASED [None]
  - FEELING COLD [None]
  - POLLAKIURIA [None]
  - OEDEMA PERIPHERAL [None]
